FAERS Safety Report 13647615 (Version 1)
Quarter: 2017Q2

REPORT INFORMATION
  Report Type: Spontaneous
  Country: CN (occurrence: CN)
  Receive Date: 20170613
  Receipt Date: 20170613
  Transmission Date: 20170830
  Serious: Yes (Other)
  Sender: FDA-Public Use
  Company Number: CN-ASTRAZENECA-2017SE61500

PATIENT
  Sex: Male
  Weight: 70 kg

DRUGS (12)
  1. AMINOCAPROIC ACID. [Suspect]
     Active Substance: AMINOCAPROIC ACID
     Indication: HAEMORRHAGE
     Route: 041
     Dates: start: 20170113, end: 20170115
  2. CEFOPERAZONE SODIUM AND SULBACTAM SODIUM [Concomitant]
     Active Substance: CEFOPERAZONE SODIUM\SULBACTAM SODIUM
     Indication: HAEMORRHAGIC FEVER
     Route: 041
     Dates: start: 20170113, end: 20170120
  3. ESOMEPRAZOLE SODIUM. [Suspect]
     Active Substance: ESOMEPRAZOLE SODIUM
     Indication: MUSCLE SPASMS
     Route: 041
     Dates: start: 20170113, end: 20170117
  4. NEUTRAL INSULIN [Concomitant]
     Active Substance: INSULIN BEEF
     Indication: BLOOD GLUCOSE ABNORMAL
     Dosage: 3 U DAILY
     Route: 041
     Dates: start: 20170113, end: 20170120
  5. AMIKACIN SULFATE. [Concomitant]
     Active Substance: AMIKACIN SULFATE
     Indication: HAEMORRHAGIC FEVER
     Route: 041
     Dates: start: 20170113, end: 20170120
  6. ESOMEPRAZOLE SODIUM. [Suspect]
     Active Substance: ESOMEPRAZOLE SODIUM
     Indication: ENZYME INHIBITION
     Route: 041
     Dates: start: 20170113, end: 20170117
  7. GLUCOSE AND SODIUM CHLORIDE [Concomitant]
     Indication: MEDICATION DILUTION
     Route: 041
     Dates: start: 20170113, end: 20170120
  8. NEUTRAL INSULIN [Concomitant]
     Active Substance: INSULIN BEEF
     Indication: BLOOD GLUCOSE ABNORMAL
     Dosage: 3 U DAILY
     Route: 041
     Dates: start: 20170113, end: 20170115
  9. POTASSIUM CHLORIDE. [Concomitant]
     Active Substance: POTASSIUM CHLORIDE
     Indication: BLOOD POTASSIUM ABNORMAL
     Route: 041
     Dates: start: 20170113, end: 20170115
  10. SODIUM CHLORIDE. [Concomitant]
     Active Substance: SODIUM CHLORIDE
     Indication: MEDICATION DILUTION
     Route: 041
     Dates: start: 20170113, end: 20170120
  11. POTASSIUM CHLORIDE. [Concomitant]
     Active Substance: POTASSIUM CHLORIDE
     Indication: BLOOD POTASSIUM ABNORMAL
     Route: 041
     Dates: start: 20170113, end: 20170120
  12. GLUCOSE AND SODIUM CHLORIDE [Concomitant]
     Indication: MEDICATION DILUTION
     Route: 041
     Dates: start: 20170113, end: 20170115

REACTIONS (1)
  - Liver injury [Recovering/Resolving]
